FAERS Safety Report 18527995 (Version 1)
Quarter: 2020Q4

REPORT INFORMATION
  Report Type: Spontaneous
  Country: US (occurrence: US)
  Receive Date: 20201120
  Receipt Date: 20201120
  Transmission Date: 20210114
  Serious: Yes (Hospitalization, Other)
  Sender: FDA-Public Use
  Company Number: US-GLAXOSMITHKLINE-US2020GSK226252

PATIENT
  Age: 40 Year
  Sex: Male

DRUGS (4)
  1. ATORVASTATIN [Concomitant]
     Active Substance: ATORVASTATIN
     Indication: HYPERLIPIDAEMIA
     Dosage: UNK
  2. FLUTICASONE FUROATE [Suspect]
     Active Substance: FLUTICASONE FUROATE
     Indication: ASTHMA
     Dosage: UNK
  3. VILANTEROL [Concomitant]
     Active Substance: VILANTEROL TRIFENATATE
     Indication: ASTHMA
     Dosage: UNK
     Route: 055
  4. FEXOFENADINE [Concomitant]
     Active Substance: FEXOFENADINE HYDROCHLORIDE
     Indication: RHINITIS ALLERGIC
     Dosage: UNK

REACTIONS (15)
  - Metapneumovirus infection [Unknown]
  - Cough [Unknown]
  - Rhonchi [Unknown]
  - Asthenia [Unknown]
  - Pneumonia streptococcal [Unknown]
  - Malaise [Unknown]
  - Hypoxia [Unknown]
  - Dyspnoea [Unknown]
  - Acute respiratory distress syndrome [Unknown]
  - Pyrexia [Unknown]
  - Myalgia [Unknown]
  - Septic shock [Unknown]
  - Headache [Unknown]
  - Nausea [Unknown]
  - Back pain [Unknown]
